FAERS Safety Report 9643493 (Version 5)
Quarter: 2014Q2

REPORT INFORMATION
  Report Type: Report from Study
  Country: HU (occurrence: HU)
  Receive Date: 20131024
  Receipt Date: 20140521
  Transmission Date: 20141212
  Serious: Yes (Hospitalization)
  Sender: FDA-Public Use
  Company Number: HU-ROCHE-1277837

PATIENT
  Age: 46 Year
  Sex: Female
  Weight: 57.4 kg

DRUGS (7)
  1. VEMURAFENIB [Suspect]
     Indication: MALIGNANT MELANOMA
     Route: 048
     Dates: start: 20130907
  2. VEMURAFENIB [Suspect]
     Route: 048
     Dates: start: 20130916
  3. VEMURAFENIB [Suspect]
     Dosage: DOSE REDUCED
     Route: 048
     Dates: start: 20130917
  4. VEMURAFENIB [Suspect]
     Route: 048
     Dates: start: 20130918
  5. ACENOCOUMAROL [Suspect]
     Indication: ANTICOAGULANT THERAPY
     Route: 048
     Dates: start: 20130904
  6. PANTOPRAZOL [Concomitant]
     Route: 065
     Dates: start: 20130917, end: 20130925
  7. ALPRAZOLAM [Concomitant]
     Indication: ANXIETY
     Route: 065
     Dates: start: 20130917, end: 20130924

REACTIONS (1)
  - Toxic skin eruption [Recovered/Resolved]
